FAERS Safety Report 26059561 (Version 1)
Quarter: 2025Q4

REPORT INFORMATION
  Report Type: Spontaneous
  Country: US (occurrence: US)
  Receive Date: 20251118
  Receipt Date: 20251118
  Transmission Date: 20260117
  Serious: Yes (Other)
  Sender: Haleon PLC
  Company Number: US-HALEON-2274479

PATIENT
  Age: 81 Year
  Sex: Male

DRUGS (1)
  1. ACETAMINOPHEN [Suspect]
     Active Substance: ACETAMINOPHEN
     Indication: Product used for unknown indication

REACTIONS (7)
  - Generalised bullous fixed drug eruption [Recovered/Resolved]
  - Skin plaque [Recovered/Resolved]
  - Dermatitis bullous [Recovered/Resolved]
  - Post inflammatory pigmentation change [Recovered/Resolved]
  - Blister [Recovered/Resolved]
  - Dermatitis [Recovered/Resolved]
  - Epidermal necrosis [Recovered/Resolved]
